FAERS Safety Report 12286398 (Version 2)
Quarter: 2016Q2

REPORT INFORMATION
  Report Type: Spontaneous
  Country: US (occurrence: US)
  Receive Date: 20160420
  Receipt Date: 20160511
  Transmission Date: 20160815
  Serious: No
  Sender: FDA-Public Use
  Company Number: US-PFIZER INC-2016221607

PATIENT
  Age: 75 Year
  Sex: Female
  Weight: 85.28 kg

DRUGS (10)
  1. PRAVASTATIN [Concomitant]
     Active Substance: PRAVASTATIN\PRAVASTATIN SODIUM
     Indication: BLOOD CHOLESTEROL ABNORMAL
     Dosage: 40 MG, 1X/DAY (40MG TABLET, ONE TABLET BY MOUTH AT NIGHT)
     Route: 048
  2. BUMEX [Concomitant]
     Active Substance: BUMETANIDE
     Indication: CARDIAC FAILURE CONGESTIVE
     Dosage: 0.5 MG, DAILY (0.5MG TABLETS, ONE TABLET BY MOUTH DAILY)
     Route: 048
  3. SERTRALINE HCL [Concomitant]
     Active Substance: SERTRALINE HYDROCHLORIDE
     Indication: DEPRESSION
     Dosage: 50 MG, DAILY (50 MG TABLET, ONE TABLET BY MOUTH DAILY)
     Route: 048
  4. XELJANZ [Suspect]
     Active Substance: TOFACITINIB CITRATE
     Indication: RHEUMATOID ARTHRITIS
     Dosage: 5 MG TABLETS, ONE TABLET IN THE MORNING AND ONE IN THE EVENING
     Route: 048
     Dates: start: 20160401, end: 20160417
  5. WARFARIN [Concomitant]
     Active Substance: WARFARIN
     Indication: BLOOD DISORDER
     Dosage: 2MG TABLET, THREE TABLETS ON TUESDAYS AND THURSDAYS AND AND TWO TABLETS ON ALL OTHER DAYS
     Route: 048
  6. ALDACTONE [Concomitant]
     Active Substance: SPIRONOLACTONE
     Indication: CARDIAC FAILURE CONGESTIVE
     Dosage: 25 MG, DAILY (25MG TABLET, ONE TABLET BY MOUTH DAILY)
     Route: 048
  7. ADCIRCA [Concomitant]
     Active Substance: TADALAFIL
     Indication: PULMONARY HYPERTENSION
     Dosage: 40 MG, 1X/DAY (20MG TABLET, TWO TABLETS BY MOUTH IN THE AM)
     Route: 048
  8. COREG [Concomitant]
     Active Substance: CARVEDILOL
     Indication: CARDIAC DISORDER
     Dosage: 6.25 MG, 2X/DAY (6.25MG TABLETS, ONE TABLET BY MOUTH IN THE AM AND IN THE PM)
     Route: 048
  9. WARFARIN [Concomitant]
     Active Substance: WARFARIN
     Indication: CARDIAC DISORDER
  10. NOVOLIN [Concomitant]
     Active Substance: INSULIN HUMAN
     Indication: DIABETES MELLITUS
     Dosage: 25 UNIT INJ IN STOMACH IN AM; 15 UNIT INJ IN STOMACH IN PM

REACTIONS (9)
  - Chest discomfort [Not Recovered/Not Resolved]
  - Cough [Not Recovered/Not Resolved]
  - Dyspnoea [Not Recovered/Not Resolved]
  - Sneezing [Unknown]
  - Drug dose omission [Unknown]
  - Head discomfort [Not Recovered/Not Resolved]
  - Rhinorrhoea [Not Recovered/Not Resolved]
  - Fatigue [Unknown]
  - Nasopharyngitis [Not Recovered/Not Resolved]

NARRATIVE: CASE EVENT DATE: 20160414
